FAERS Safety Report 5756335-3 (Version None)
Quarter: 2008Q2

REPORT INFORMATION
  Report Type: 
  Country: None (occurrence: None)
  Receive Date: 20080603
  Receipt Date: 20080602
  Transmission Date: 20081010
  Serious: Yes (Hospitalization)
  Sender: FDA-Public Use
  Company Number: US-BAYER-US-2007-005240

PATIENT
  Age: 22 Year
  Sex: Female
  Weight: 70 kg

DRUGS (1)
  1. MIRENA [Suspect]
     Indication: CONTRACEPTION
     Route: 015
     Dates: start: 20070201, end: 20080314

REACTIONS (6)
  - ABDOMINAL PAIN LOWER [None]
  - CHILLS [None]
  - MENORRHAGIA [None]
  - PELVIC INFLAMMATORY DISEASE [None]
  - PYREXIA [None]
  - WEIGHT INCREASED [None]
